FAERS Safety Report 5212756-9 (Version None)
Quarter: 2006Q4

REPORT INFORMATION
  Report Type: 
  Country: None (occurrence: None)
  Receive Date: 20061115
  Receipt Date: 20060717
  Transmission Date: 20070319
  Serious: No
  Sender: FDA-Public Use
  Company Number: 200611327BWH

PATIENT
  Age: 59 Year
  Sex: Male

DRUGS (4)
  1. NEXAVAR [Suspect]
     Indication: RENAL CELL CARCINOMA STAGE UNSPECIFIED
     Dosage: 400 MG, BID; ORAL
     Route: 048
     Dates: start: 20060210
  2. BENICAR [Concomitant]
  3. ZOCOR [Concomitant]
  4. PREDNISONE [Concomitant]

REACTIONS (6)
  - ALOPECIA [None]
  - DIARRHOEA [None]
  - PALMAR-PLANTAR ERYTHRODYSAESTHESIA SYNDROME [None]
  - PRURITUS [None]
  - SKIN DISCOLOURATION [None]
  - SKIN IRRITATION [None]
